FAERS Safety Report 4507348-0 (Version None)
Quarter: 2004Q4

REPORT INFORMATION
  Report Type: 
  Country: None (occurrence: None)
  Receive Date: 20041118
  Receipt Date: 20041104
  Transmission Date: 20050328
  Serious: Yes (Hospitalization)
  Sender: FDA-Public Use
  Company Number: 205834

PATIENT
  Age: 42 Year
  Sex: Male

DRUGS (5)
  1. AVONEX [Suspect]
     Indication: MULTIPLE SCLEROSIS
     Dosage: 30 MCG QW IM
     Route: 030
     Dates: start: 20030601
  2. AVONEX [Suspect]
     Indication: MULTIPLE SCLEROSIS
     Dosage: 30 MCG QW IM
     Route: 030
  3. ULTRACET [Concomitant]
  4. ADVIL [Concomitant]
  5. MULTI-VITAMINS [Concomitant]

REACTIONS (3)
  - HEMIPLEGIA [None]
  - INJECTION SITE REACTION [None]
  - RELAPSING-REMITTING MULTIPLE SCLEROSIS [None]
